FAERS Safety Report 6031364-3 (Version None)
Quarter: 2009Q1

REPORT INFORMATION
  Report Type: 
  Country: None (occurrence: None)
  Receive Date: 20090108
  Receipt Date: 20071008
  Transmission Date: 20090719
  Serious: Yes (Death, Other)
  Sender: FDA-Public Use
  Company Number: US-ASTRAZENECA-2006UW21524

PATIENT
  Age: 78 Year
  Sex: Male
  Weight: 63.5 kg

DRUGS (85)
  1. SEROQUEL [Suspect]
     Indication: ANXIETY
     Route: 048
     Dates: start: 20030101, end: 20060909
  2. SEROQUEL [Suspect]
     Route: 048
     Dates: start: 20030509, end: 20040509
  3. SEROQUEL [Suspect]
     Route: 048
     Dates: start: 20040401, end: 20050402
  4. SEROQUEL [Suspect]
     Route: 048
     Dates: start: 20041005, end: 20051006
  5. SEROQUEL [Suspect]
     Route: 048
     Dates: start: 20050922
  6. SEROQUEL [Suspect]
     Route: 048
     Dates: start: 20060109
  7. SEROQUEL [Suspect]
     Dosage: ONE TABLET IN MORNING THEN TWO TABLETS EVENING
     Route: 048
     Dates: start: 20060403
  8. SEROQUEL [Suspect]
     Dosage: ONE TABLET IN MORNING THEN TWO TABLETS EVENING
     Route: 048
     Dates: start: 20060403
  9. ROSIGLITAZONE MALEATE [Concomitant]
     Indication: BLOOD GLUCOSE ABNORMAL
     Route: 048
     Dates: start: 20050823, end: 20060824
  10. ROSIGLITAZONE MALEATE [Concomitant]
     Route: 048
     Dates: start: 20060724
  11. ROSIGLITAZONE MALEATE [Concomitant]
     Route: 048
     Dates: start: 20060403
  12. TRAZODONE HCL [Concomitant]
     Route: 048
     Dates: start: 20050408, end: 20060409
  13. TRAZODONE HCL [Concomitant]
     Route: 048
     Dates: start: 20060109
  14. TRAZODONE HCL [Concomitant]
     Route: 048
     Dates: start: 20060405
  15. TRAZODONE HCL [Concomitant]
     Route: 048
     Dates: start: 20060403
  16. SIMVASTATIN [Concomitant]
     Indication: BLOOD CHOLESTEROL
     Route: 048
     Dates: start: 20041005, end: 20051006
  17. SIMVASTATIN [Concomitant]
     Route: 048
     Dates: start: 20050411, end: 20060412
  18. SIMVASTATIN [Concomitant]
     Route: 048
     Dates: start: 20060403
  19. SIMVASTATIN [Concomitant]
     Route: 048
     Dates: start: 20060403
  20. GLIPIZIDE [Concomitant]
     Indication: BLOOD GLUCOSE INCREASED
     Route: 048
     Dates: start: 20020920, end: 20021219
  21. GLIPIZIDE [Concomitant]
     Route: 048
     Dates: start: 20030109, end: 20030409
  22. GLIPIZIDE [Concomitant]
     Route: 048
     Dates: start: 20030115, end: 20040116
  23. GLIPIZIDE [Concomitant]
     Route: 048
     Dates: start: 20030117, end: 20040118
  24. GLIPIZIDE [Concomitant]
     Route: 048
     Dates: start: 20040310, end: 20050311
  25. GLIPIZIDE [Concomitant]
     Route: 048
     Dates: start: 20040401, end: 20050402
  26. GLIPIZIDE [Concomitant]
     Route: 048
     Dates: start: 20041005, end: 20051006
  27. GLIPIZIDE [Concomitant]
     Dosage: 1 TABLET EVERY MORNING, 2 TABLETS EVERY EVENING
     Route: 048
     Dates: start: 20050408, end: 20060409
  28. GLIPIZIDE [Concomitant]
     Dosage: 1 TABLET EVERY MORNING, 2 TABLETS EVERY EVENING
     Route: 048
     Dates: start: 20050408, end: 20060409
  29. GLIPIZIDE [Concomitant]
     Route: 048
     Dates: start: 20050823, end: 20060824
  30. GLIPIZIDE [Concomitant]
     Dates: start: 20060822
  31. OLANZAPINE [Concomitant]
     Route: 048
     Dates: start: 20030109, end: 20030208
  32. OLANZAPINE [Concomitant]
     Route: 048
     Dates: start: 20020920, end: 20030921
  33. FOSINOPRIL NA [Concomitant]
     Indication: BLOOD PRESSURE
     Route: 048
     Dates: start: 20030115, end: 20040116
  34. FOSINOPRIL NA [Concomitant]
     Indication: PROPHYLAXIS
     Route: 048
     Dates: start: 20030115, end: 20040116
  35. FOSINOPRIL NA [Concomitant]
     Route: 048
     Dates: start: 20030509, end: 20040509
  36. FOSINOPRIL NA [Concomitant]
     Route: 048
     Dates: start: 20030509, end: 20040509
  37. FOSINOPRIL NA [Concomitant]
     Route: 048
     Dates: start: 20040310, end: 20050311
  38. FOSINOPRIL NA [Concomitant]
     Route: 048
     Dates: start: 20040310, end: 20050311
  39. FOSINOPRIL NA [Concomitant]
     Route: 048
     Dates: start: 20041005, end: 20051006
  40. FOSINOPRIL NA [Concomitant]
     Route: 048
     Dates: start: 20041005, end: 20051006
  41. GEMFIBROZIL [Concomitant]
     Indication: BLOOD TRIGLYCERIDES INCREASED
     Route: 048
     Dates: start: 20030115, end: 20040116
  42. GEMFIBROZIL [Concomitant]
     Indication: BLOOD CHOLESTEROL
     Route: 048
     Dates: start: 20030115, end: 20040116
  43. GEMFIBROZIL [Concomitant]
     Route: 048
     Dates: start: 20030509, end: 20040509
  44. GEMFIBROZIL [Concomitant]
     Route: 048
     Dates: start: 20030509, end: 20040509
  45. GEMFIBROZIL [Concomitant]
     Route: 048
     Dates: start: 20040401, end: 20050402
  46. GEMFIBROZIL [Concomitant]
     Route: 048
     Dates: start: 20040401, end: 20050402
  47. GEMFIBROZIL [Concomitant]
     Route: 048
     Dates: start: 20041005, end: 20051006
  48. GEMFIBROZIL [Concomitant]
     Route: 048
     Dates: start: 20041005, end: 20051006
  49. LATANOPROST [Concomitant]
     Dosage: 1 DROP IN LEFT EYE AT BEDTIME
     Route: 047
     Dates: start: 20030115, end: 20040116
  50. LATANOPROST [Concomitant]
     Dosage: 1 DROP IN LEFT EYE AT BEDTIME
     Route: 047
     Dates: start: 20030509, end: 20040509
  51. PAROXETINE HCL [Concomitant]
     Indication: ANXIETY
     Route: 048
     Dates: start: 20030115, end: 20040116
  52. TRIAMCINOLONE [Concomitant]
     Dates: start: 20031001, end: 20041001
  53. GALANTAMINE HYDROBROMIDE [Concomitant]
     Route: 048
     Dates: start: 20040401, end: 20050402
  54. GALANTAMINE HYDROBROMIDE [Concomitant]
     Route: 048
     Dates: start: 20040701, end: 20050702
  55. GALANTAMINE HYDROBROMIDE [Concomitant]
     Route: 048
     Dates: start: 20041005, end: 20051006
  56. GALANTAMINE HYDROBROMIDE [Concomitant]
     Route: 048
     Dates: start: 20051014
  57. TRAVOPROST [Concomitant]
     Indication: GLAUCOMA
     Dosage: 1 DROP IN LEFT EYE AT BEDTIME
     Route: 047
     Dates: start: 20040401, end: 20050402
  58. TRAVOPROST [Concomitant]
     Dosage: 1 DROP IN LEFT EYE AT BEDTIME
     Route: 047
     Dates: start: 20051014
  59. AMOXICILLIN/CLAV K [Concomitant]
     Dosage: AMOXICILIN 500/CLAV K 125 MG
     Route: 048
     Dates: start: 20050823, end: 20050922
  60. AMOXICILLIN/CLAV K [Concomitant]
     Dates: start: 20060830
  61. ALBUTEROL [Concomitant]
     Indication: WHEEZING
     Route: 055
     Dates: start: 20030401
  62. ALBUTEROL [Concomitant]
     Dosage: 1 PUFF FOUR TIMES A DAY
     Route: 055
     Dates: start: 20050823, end: 20060824
  63. RANITIDINE HCL [Concomitant]
     Indication: ABDOMINAL DISCOMFORT
     Route: 048
     Dates: start: 20050823, end: 20060824
  64. LOSARTAN [Concomitant]
     Route: 048
     Dates: start: 20051103
  65. OPTIRAY 320 [Concomitant]
     Dates: start: 20050816
  66. LORAZEPAM [Concomitant]
     Dosage: 2 MG/ML
     Dates: start: 20060821
  67. NITROGLYCERIN [Concomitant]
     Dates: start: 20060821
  68. LEVOFLOXACIN [Concomitant]
     Dosage: 5 MF/ML
     Dates: start: 20060821
  69. LEVOFLOXACIN [Concomitant]
     Dates: start: 20060824
  70. ENOXAPARIN SODIUM [Concomitant]
     Dates: start: 20060822, end: 20060824
  71. HEPARIN [Concomitant]
     Dosage: 5000 U/ML
     Dates: start: 20060824
  72. CEFEPIME [Concomitant]
     Dosage: 2 GM
     Dates: start: 20060827
  73. SODIUM CHLORIDE [Concomitant]
     Dates: start: 20060823
  74. ASPIRIN [Concomitant]
     Dates: start: 20060821
  75. METOPROLOL [Concomitant]
     Dates: start: 20060821, end: 20060821
  76. ACETAMINOPHEN [Concomitant]
     Dates: start: 20060822
  77. ALPRAZOLAM [Concomitant]
     Dates: start: 20060822
  78. HUMALOG [Concomitant]
     Dosage: 100 U/ML
     Dates: start: 20060822
  79. ATORVASTATIN CALCIUM [Concomitant]
     Dates: start: 20060822
  80. PANTOPRAZOLE [Concomitant]
     Dates: start: 20060822
  81. ISOSORBIDE MONONITRATE [Concomitant]
     Dates: start: 20060823
  82. POT CHLORIDE [Concomitant]
     Dates: start: 20060824
  83. DIPHENHYDRAMINE HCL [Concomitant]
     Dates: start: 20060829
  84. OXYCODONE [Concomitant]
  85. LANSOPRAZOLE [Concomitant]
     Dates: start: 20060831

REACTIONS (14)
  - BENIGN LUNG NEOPLASM [None]
  - BLOOD TRIGLYCERIDES INCREASED [None]
  - CONVULSION [None]
  - DEATH [None]
  - DEHYDRATION [None]
  - DEMENTIA ALZHEIMER'S TYPE [None]
  - DIABETES MELLITUS [None]
  - HYPERLIPIDAEMIA [None]
  - MENTAL STATUS CHANGES [None]
  - PNEUMONIA [None]
  - PYREXIA [None]
  - RENAL FAILURE [None]
  - TREMOR [None]
  - TROPONIN INCREASED [None]
